FAERS Safety Report 10219165 (Version 4)
Quarter: 2016Q3

REPORT INFORMATION
  Report Type: Spontaneous
  Country: JP (occurrence: JP)
  Receive Date: 20140605
  Receipt Date: 20160722
  Transmission Date: 20161109
  Serious: Yes (Other)
  Sender: FDA-Public Use
  Company Number: JP-BAYER-2014-078168

PATIENT
  Age: 76 Year
  Sex: Male
  Weight: 63 kg

DRUGS (17)
  1. STIVARGA [Suspect]
     Active Substance: REGORAFENIB
     Indication: COLON CANCER STAGE IV
     Dosage: 120 MG, QD ON DAYS 1 TO 21 EVERY 4 WEEKS
     Route: 048
     Dates: start: 20131008, end: 20131028
  2. WARFARIN [Suspect]
     Active Substance: WARFARIN
     Dosage: DAILY DOSE 1MG
     Route: 048
     Dates: start: 20131119
  3. NICORANDIL [Concomitant]
     Active Substance: NICORANDIL
     Dosage: DAILY DOSE 10 MG
     Route: 048
  4. WARFARIN [Suspect]
     Active Substance: WARFARIN
     Dosage: 1.5 MG DAILY
     Dates: start: 2014, end: 2014
  5. THYRADIN S [Concomitant]
     Active Substance: LEVOTHYROXINE SODIUM
     Dosage: DAILY DOSE 75 ?G
     Route: 048
  6. LIDUC M [Concomitant]
     Active Substance: PRAVASTATIN SODIUM
     Dosage: DAILY DOSE 5 MG
     Route: 048
  7. STIVARGA [Interacting]
     Active Substance: REGORAFENIB
     Indication: COLON CANCER STAGE IV
     Dosage: 80 MG, QD ON DAYS 1 TO 14 EVERY 3 WEEKS AT A PHYSICIAN^S DISCRETION
     Route: 048
     Dates: start: 2014, end: 2014
  8. WARFARIN [Suspect]
     Active Substance: WARFARIN
     Dosage: DAILY DOSE 2 MG
     Route: 048
     Dates: start: 20131029, end: 20131029
  9. WARFARIN [Suspect]
     Active Substance: WARFARIN
     Dosage: UP TO 1 MG DAILY
  10. WARFARIN [Suspect]
     Active Substance: WARFARIN
     Dosage: UPTO 1.5 MG DAILY
     Dates: end: 201403
  11. STIVARGA [Interacting]
     Active Substance: REGORAFENIB
     Indication: COLON CANCER STAGE IV
     Dosage: 80 MG, QD ON DAYS 1 TO 14 EVERY 3 WEEKS AT A PHYSICIAN^S DISCRETION
     Route: 048
     Dates: start: 20131112, end: 201403
  12. URSO [Concomitant]
     Active Substance: URSODIOL
     Indication: PROPHYLAXIS
     Dosage: DAILY DOSE 600 MG
     Route: 048
     Dates: start: 20131001, end: 20131021
  13. ZYLORIC [Concomitant]
     Active Substance: ALLOPURINOL
     Dosage: DAILY DOSE 200 MG
     Route: 048
  14. WARFARIN [Suspect]
     Active Substance: WARFARIN
     Dosage: DAILY DOSE 0.5MG
     Route: 048
     Dates: start: 20131105, end: 20131118
  15. ALDACTONE A [Concomitant]
     Active Substance: SPIRONOLACTONE
     Dosage: DAILY DOSE 25 MG
     Route: 048
  16. WARFARIN [Suspect]
     Active Substance: WARFARIN
     Dosage: 1 MG DAILY
     Dates: start: 2014, end: 2014
  17. URSO [Concomitant]
     Active Substance: URSODIOL
     Indication: PROPHYLAXIS
     Dosage: DAILY DOSE 300MG
     Dates: start: 20131022, end: 20131125

REACTIONS (9)
  - Prothrombin time prolonged [Recovered/Resolved]
  - International normalised ratio increased [None]
  - Pneumothorax [Recovered/Resolved]
  - Metastases to liver [None]
  - Palmar-plantar erythrodysaesthesia syndrome [None]
  - Prothrombin time prolonged [None]
  - Carcinoembryonic antigen increased [None]
  - International normalised ratio increased [Recovered/Resolved]
  - Drug interaction [None]

NARRATIVE: CASE EVENT DATE: 201310
